FAERS Safety Report 6642198-0 (Version None)
Quarter: 2010Q1

REPORT INFORMATION
  Report Type: 
  Country: None (occurrence: None)
  Receive Date: 20100319
  Receipt Date: 20100311
  Transmission Date: 20100710
  Serious: Yes (Other)
  Sender: FDA-Public Use
  Company Number: BR-PFIZER INC-2010018196

PATIENT
  Sex: Male

DRUGS (2)
  1. TERRAMYCIN V CAP [Suspect]
     Indication: FUNGAL INFECTION
     Dosage: UNK, ONCE DAILY, AT NIGHT
     Route: 061
     Dates: start: 20070101, end: 20100301
  2. TERRAMYCIN V CAP [Suspect]
     Indication: CHILLBLAINS

REACTIONS (2)
  - DIABETES MELLITUS [None]
  - DRUG ADMINISTRATION ERROR [None]
